FAERS Safety Report 17369243 (Version 3)
Quarter: 2021Q2

REPORT INFORMATION
  Report Type: Spontaneous
  Country: US (occurrence: US)
  Receive Date: 20200204
  Receipt Date: 20210504
  Transmission Date: 20210716
  Serious: Yes (Other)
  Sender: FDA-Public Use
  Company Number: US-ASTRAZENECA-2020SE16347

PATIENT
  Age: 22983 Day
  Sex: Male
  Weight: 124.7 kg

DRUGS (47)
  1. PREVACID 24 HR [Suspect]
     Active Substance: LANSOPRAZOLE
     Indication: GASTROOESOPHAGEAL REFLUX DISEASE
     Route: 065
     Dates: start: 2014, end: 2016
  2. LISINOPRIL. [Concomitant]
     Active Substance: LISINOPRIL
     Indication: BLOOD CHOLESTEROL ABNORMAL
     Route: 065
     Dates: start: 2014
  3. PEPTO?BISMOL [Concomitant]
     Active Substance: BISMUTH SUBSALICYLATE
     Route: 065
     Dates: start: 2019
  4. DOXYCLINE [Concomitant]
     Active Substance: DOXYCYCLINE
     Route: 065
     Dates: start: 2019
  5. PRIMIDONE. [Concomitant]
     Active Substance: PRIMIDONE
     Route: 065
     Dates: start: 2019
  6. ALBUTEROL. [Concomitant]
     Active Substance: ALBUTEROL
     Route: 065
     Dates: start: 2019
  7. SUMATRIPTAN. [Concomitant]
     Active Substance: SUMATRIPTAN
     Route: 065
     Dates: start: 2019
  8. CIPROFLOXACIN. [Concomitant]
     Active Substance: CIPROFLOXACIN
     Indication: ANTIBIOTIC THERAPY
     Route: 065
     Dates: start: 2011
  9. MILK OF MAGNESIA [Concomitant]
     Active Substance: MAGNESIUM HYDROXIDE
     Route: 065
     Dates: start: 2019
  10. ROLAIDS [Concomitant]
     Active Substance: CALCIUM CARBONATE\MAGNESIUM HYDROXIDE
     Route: 065
     Dates: start: 2019
  11. METFORMIN [Concomitant]
     Active Substance: METFORMIN HYDROCHLORIDE
     Route: 065
     Dates: start: 2019
  12. PREDNISONE. [Concomitant]
     Active Substance: PREDNISONE
     Route: 065
     Dates: start: 2019
  13. ASPIRIN. [Concomitant]
     Active Substance: ASPIRIN
     Indication: CARDIOVASCULAR DISORDER
     Route: 065
     Dates: start: 2009
  14. MAALOX ANTACID [Concomitant]
     Active Substance: ALUMINUM HYDROXIDE\DIMETHICONE\MAGNESIUM HYDROXIDE
     Route: 065
     Dates: start: 2019
  15. SIMVASTATIN. [Concomitant]
     Active Substance: SIMVASTATIN
     Route: 065
     Dates: start: 2019
  16. LISINOPRIL. [Concomitant]
     Active Substance: LISINOPRIL
     Indication: BLOOD CHOLESTEROL ABNORMAL
     Route: 065
     Dates: start: 2011
  17. CEFUROXIME. [Concomitant]
     Active Substance: CEFUROXIME
     Indication: ANTIBIOTIC THERAPY
     Route: 065
     Dates: start: 2014
  18. AZITHROMYCIN ANHYDROUS. [Concomitant]
     Active Substance: AZITHROMYCIN ANHYDROUS
     Indication: ANTIBIOTIC THERAPY
     Route: 065
     Dates: start: 2011
  19. GLIMEPIRIDE. [Concomitant]
     Active Substance: GLIMEPIRIDE
     Route: 065
     Dates: start: 2019
  20. VIMPAT [Concomitant]
     Active Substance: LACOSAMIDE
     Route: 065
     Dates: start: 2019
  21. VICTOZA [Concomitant]
     Active Substance: LIRAGLUTIDE
     Route: 065
     Dates: start: 2019
  22. VITAMINS [Concomitant]
     Active Substance: VITAMINS
     Indication: NUTRITIONAL SUPPLEMENTATION
     Route: 065
     Dates: start: 2012
  23. ZANTAC [Concomitant]
     Active Substance: RANITIDINE HYDROCHLORIDE
     Route: 065
     Dates: start: 2009
  24. TUMS [Concomitant]
     Active Substance: CALCIUM CARBONATE
     Route: 065
     Dates: start: 2019
  25. JANUVIA [Concomitant]
     Active Substance: SITAGLIPTIN PHOSPHATE
     Route: 065
     Dates: start: 2019
  26. ZOFRAN [Concomitant]
     Active Substance: ONDANSETRON HYDROCHLORIDE
     Route: 065
     Dates: start: 2019
  27. SIMVASTATIN. [Concomitant]
     Active Substance: SIMVASTATIN
     Indication: BLOOD CHOLESTEROL ABNORMAL
     Route: 065
     Dates: start: 2006, end: 2011
  28. SULFAMETHOXAZOLE TMP [Concomitant]
     Active Substance: SULFAMETHOXAZOLE\TRIMETHOPRIM
     Indication: ANTIBIOTIC THERAPY
     Route: 065
     Dates: start: 2008
  29. ROSUVASTATIN. [Concomitant]
     Active Substance: ROSUVASTATIN
     Indication: BLOOD CHOLESTEROL ABNORMAL
     Route: 065
     Dates: start: 2016, end: 2017
  30. FISH OIL [Concomitant]
     Active Substance: FISH OIL
     Indication: CARDIOVASCULAR DISORDER
     Route: 065
     Dates: start: 2012
  31. LEVITRA [Concomitant]
     Active Substance: VARDENAFIL HYDROCHLORIDE
     Route: 065
     Dates: start: 2019
  32. NAFTIN [Concomitant]
     Active Substance: NAFTIFINE HYDROCHLORIDE
     Route: 065
     Dates: start: 2019
  33. TRILEPTAL [Concomitant]
     Active Substance: OXCARBAZEPINE
     Route: 065
     Dates: start: 2019
  34. CRESTOR [Concomitant]
     Active Substance: ROSUVASTATIN CALCIUM
     Route: 065
     Dates: start: 2019
  35. HYDROCODONE [Concomitant]
     Active Substance: HYDROCODONE
     Route: 065
     Dates: start: 2019
  36. NEXIUM 24HR [Suspect]
     Active Substance: ESOMEPRAZOLE MAGNESIUM
     Indication: GASTROOESOPHAGEAL REFLUX DISEASE
     Route: 048
     Dates: start: 2014, end: 2016
  37. LISINOPRIL. [Concomitant]
     Active Substance: LISINOPRIL
     Indication: BLOOD CHOLESTEROL ABNORMAL
     Route: 065
     Dates: start: 2016
  38. AMOX K CLAV [Concomitant]
     Indication: ANTIBIOTIC THERAPY
     Route: 065
     Dates: start: 2013
  39. AMLODIPINE [Concomitant]
     Active Substance: AMLODIPINE BESYLATE
     Route: 065
     Dates: start: 2019
  40. HYDROCODONE [Concomitant]
     Active Substance: HYDROCODONE
     Route: 065
     Dates: start: 2019
  41. AZITHROMYCIN ANHYDROUS. [Concomitant]
     Active Substance: AZITHROMYCIN ANHYDROUS
     Route: 065
     Dates: start: 2019
  42. TESTOSTERONE. [Concomitant]
     Active Substance: TESTOSTERONE
     Route: 065
     Dates: start: 2019
  43. LISINOPRIL. [Concomitant]
     Active Substance: LISINOPRIL
     Indication: BLOOD CHOLESTEROL ABNORMAL
     Route: 065
     Dates: start: 2007, end: 2008
  44. LEVOFLOXACIN. [Concomitant]
     Active Substance: LEVOFLOXACIN
     Indication: ANTIBIOTIC THERAPY
     Route: 065
     Dates: start: 2016
  45. LYRICA [Concomitant]
     Active Substance: PREGABALIN
     Route: 065
     Dates: start: 2019
  46. ACTOS [Concomitant]
     Active Substance: PIOGLITAZONE HYDROCHLORIDE
     Route: 065
     Dates: start: 2019
  47. ROSUVASTATIN. [Concomitant]
     Active Substance: ROSUVASTATIN
     Route: 065
     Dates: start: 2019

REACTIONS (5)
  - Metabolic alkalosis [Unknown]
  - Renal failure [Unknown]
  - Chronic kidney disease [Not Recovered/Not Resolved]
  - Acute kidney injury [Not Recovered/Not Resolved]
  - Hypoglycaemia [Unknown]

NARRATIVE: CASE EVENT DATE: 20160920
